FAERS Safety Report 4317177-9 (Version None)
Quarter: 2004Q1

REPORT INFORMATION
  Report Type: 
  Country: None (occurrence: None)
  Receive Date: 20040312
  Receipt Date: 20040301
  Transmission Date: 20041129
  Serious: Yes (Life-Threatening)
  Sender: FDA-Public Use
  Company Number: 200403140

PATIENT
  Age: 54 Year
  Sex: Male

DRUGS (3)
  1. IMODIUM [Suspect]
     Indication: DIARRHOEA
     Dosage: 2 MG DAILY PO
     Route: 048
     Dates: start: 20040210, end: 20040210
  2. SALMETEROL [Concomitant]
  3. ALBUTEROL SULFATE [Concomitant]

REACTIONS (2)
  - ANAPHYLACTIC REACTION [None]
  - RESPIRATORY FAILURE [None]
